FAERS Safety Report 6927456-4 (Version None)
Quarter: 2010Q3

REPORT INFORMATION
  Report Type: 
  Country: None (occurrence: None)
  Receive Date: 20100812
  Receipt Date: 20100802
  Transmission Date: 20110219
  Serious: Yes (Hospitalization, Other)
  Sender: FDA-Public Use
  Company Number: 662477

PATIENT
  Age: 86 Year
  Sex: Female

DRUGS (5)
  1. FENTANYL CITRATE [Suspect]
     Indication: POST LAMINECTOMY SYNDROME
     Dosage: 10 MCG/D TO SLIGHTLY OVER 100 MCG/D INTRATHECAL
     Route: 037
  2. SUFENTANIL CITRATE [Suspect]
     Indication: POST LAMINECTOMY SYNDROME
     Dosage: 12 UG MICROGRAM(S) INTRATHCAL ; 17.2 UG MICROGRAM(S) INTRATHECAL
     Route: 037
  3. (ZICONOTIDE) [Suspect]
     Indication: POST LAMINECTOMY SYNDROME
     Dosage: 2.4 MCG/D TO A MAXIMUM OF 4.8 MCG/D INTRATHECAL
     Route: 037
  4. BACLOFEN [Suspect]
     Indication: POST LAMINECTOMY SYNDROME
     Dosage: UP TO 30 MCG/D INTRATHECAL
     Route: 037
  5. (MUSCLE RELAXANTS) [Concomitant]

REACTIONS (10)
  - BACK PAIN [None]
  - DRUG INEFFECTIVE [None]
  - GRANULOMA [None]
  - MASS [None]
  - MEDICAL DEVICE COMPLICATION [None]
  - MUSCULAR WEAKNESS [None]
  - PROCEDURAL COMPLICATION [None]
  - SENSORY DISTURBANCE [None]
  - SOMNOLENCE [None]
  - WEIGHT BEARING DIFFICULTY [None]
